FAERS Safety Report 5944209-4 (Version None)
Quarter: 2008Q4

REPORT INFORMATION
  Report Type: 
  Country: None (occurrence: None)
  Receive Date: 20081106
  Receipt Date: 20081030
  Transmission Date: 20090506
  Serious: Yes (Congenital Anomaly, Other)
  Sender: FDA-Public Use
  Company Number: IE-MERCK-0810GBR00147

PATIENT
  Age: 0 Day
  Weight: 1 kg

DRUGS (3)
  1. JANUVIA [Suspect]
     Route: 064
  2. INSULIN ASPART, BIPHASIC ISOPHANE [INJECTION] [Suspect]
     Route: 064
  3. ROSIGLITAZONE MALEATE [Suspect]
     Route: 064

REACTIONS (4)
  - GROWTH RETARDATION [None]
  - PREMATURE BABY [None]
  - SINGLE FUNCTIONAL KIDNEY [None]
  - SMALL FOR DATES BABY [None]
